FAERS Safety Report 6524249-7 (Version None)
Quarter: 2009Q4

REPORT INFORMATION
  Report Type: 
  Country: None (occurrence: None)
  Receive Date: 20091230
  Receipt Date: 20091230
  Transmission Date: 20100525
  Serious: No
  Sender: FDA-Public Use
  Company Number: None

PATIENT
  Age: 50 Year
  Sex: Male
  Weight: 73.2 kg

DRUGS (1)
  1. METHADONE HCL [Suspect]
     Indication: PAIN
     Dosage: 10 MG QID PO
     Route: 048
     Dates: start: 20090923, end: 20090926

REACTIONS (5)
  - MIOSIS [None]
  - OXYGEN SATURATION DECREASED [None]
  - SEDATION [None]
  - SOMNOLENCE [None]
  - TREATMENT NONCOMPLIANCE [None]
